FAERS Safety Report 24905712 (Version 1)
Quarter: 2025Q1

REPORT INFORMATION
  Report Type: Report from Study
  Country: US (occurrence: US)
  Receive Date: 20250130
  Receipt Date: 20250130
  Transmission Date: 20250409
  Serious: No
  Sender: HRA PHARMA
  Company Number: US-ORG100014127-2024000314

PATIENT
  Age: 40 Year
  Sex: Female

DRUGS (1)
  1. METOPIRONE [Suspect]
     Active Substance: METYRAPONE
     Indication: Cushing^s syndrome
     Dates: start: 20241004, end: 2024

REACTIONS (1)
  - Off label use [Recovered/Resolved]

NARRATIVE: CASE EVENT DATE: 20241004
